FAERS Safety Report 6310907-6 (Version None)
Quarter: 2009Q3

REPORT INFORMATION
  Report Type: 
  Country: None (occurrence: None)
  Receive Date: 20090812
  Receipt Date: 20090806
  Transmission Date: 20100115
  Serious: Yes (Hospitalization)
  Sender: FDA-Public Use
  Company Number: 2009SP018027

PATIENT
  Age: 49 Year
  Sex: Male
  Weight: 62 kg

DRUGS (2)
  1. PEG-INTRON [Suspect]
     Indication: HEPATITIS C
     Dosage: 80 MCG; QW
     Dates: start: 20081029, end: 20090713
  2. RIBAVIRIN [Suspect]
     Indication: HEPATITIS C
     Dosage: 250 MG;QD
     Dates: start: 20081029, end: 20090713

REACTIONS (3)
  - FISTULA [None]
  - PLEURAL EFFUSION [None]
  - PNEUMONIA [None]
